FAERS Safety Report 15405157 (Version 1)
Quarter: 2018Q3

REPORT INFORMATION
  Report Type: Spontaneous
  Country: FR (occurrence: FR)
  Receive Date: 20180920
  Receipt Date: 20180920
  Transmission Date: 20181010
  Serious: No
  Sender: FDA-Public Use
  Company Number: FR-LUPIN PHARMACEUTICALS INC.-2018-00382

PATIENT
  Sex: Female

DRUGS (1)
  1. MISOPROSTOL TABLET [Suspect]
     Active Substance: MISOPROSTOL
     Dosage: UNK (ONE TABLET TO BE TAKEN EVERY 30 MIN)
     Route: 048

REACTIONS (1)
  - Vaginal haemorrhage [Unknown]
